FAERS Safety Report 9999558 (Version 2)
Quarter: 2014Q1

REPORT INFORMATION
  Report Type: Spontaneous
  Country: US (occurrence: FR)
  Receive Date: 20140312
  Receipt Date: 20140312
  Transmission Date: 20141002
  Serious: No
  Sender: FDA-Public Use
  Company Number: US-TEVA-404071USA

PATIENT
  Sex: Female

DRUGS (2)
  1. AMOXICILLIN [Suspect]
     Indication: INFECTION PROPHYLAXIS
     Dosage: 3000 MILLIGRAM DAILY;
     Dates: end: 2012
  2. AMOXICILLIN [Suspect]
     Indication: URINARY TRACT INFECTION

REACTIONS (8)
  - Diarrhoea [Not Recovered/Not Resolved]
  - Hypersensitivity [Recovered/Resolved]
  - Rash [Recovered/Resolved]
  - Lip swelling [Recovered/Resolved]
  - Abdominal pain [Recovered/Resolved]
  - Weight decreased [Unknown]
  - Dysbacteriosis [Unknown]
  - Urticaria [Recovered/Resolved]
